FAERS Safety Report 15826526 (Version 2)
Quarter: 2019Q1

REPORT INFORMATION
  Report Type: Spontaneous
  Country: FR (occurrence: FR)
  Receive Date: 20190115
  Receipt Date: 20190202
  Transmission Date: 20190417
  Serious: Yes (Hospitalization, Other)
  Sender: FDA-Public Use
  Company Number: PHHY2019FR004358

PATIENT
  Age: 28 Year
  Sex: Female

DRUGS (4)
  1. AMOXICILLIN+CLAVULANIC ACID [Suspect]
     Active Substance: AMOXICILLIN\CLAVULANIC ACID
     Indication: PROPHYLAXIS
     Dosage: UNK
     Route: 065
  2. AMOXICILLIN+CLAVULANIC ACID [Suspect]
     Active Substance: AMOXICILLIN\CLAVULANIC ACID
     Indication: PUERPERAL PYREXIA
  3. AMOXICILLIN. [Suspect]
     Active Substance: AMOXICILLIN
     Indication: PROPHYLAXIS
     Dosage: UNK
     Route: 065
  4. AMOXICILLIN+CLAVULANIC ACID [Suspect]
     Active Substance: AMOXICILLIN\CLAVULANIC ACID
     Indication: PREMATURE RUPTURE OF MEMBRANES

REACTIONS (4)
  - Product use in unapproved indication [Unknown]
  - Maternal exposure during pregnancy [Unknown]
  - Clostridium difficile infection [Recovered/Resolved]
  - Live birth [Unknown]
